FAERS Safety Report 6427951-0 (Version None)
Quarter: 2009Q4

REPORT INFORMATION
  Report Type: 
  Country: None (occurrence: None)
  Receive Date: 20091105
  Receipt Date: 20091102
  Transmission Date: 20100525
  Serious: Yes (Other)
  Sender: FDA-Public Use
  Company Number: US-ROCHE-612351

PATIENT
  Sex: Female
  Weight: 81.6 kg

DRUGS (3)
  1. CAPECITABINE [Suspect]
     Dosage: 8 TABLETS TAKEN TWO WEEKS ON AN DONE WEEK OFF
     Route: 048
  2. CAPECITABINE [Suspect]
     Dosage: TAKEN ONE WEEK ON AND ONE WEEK OFF
     Route: 048
     Dates: start: 20090101
  3. CAPECITABINE [Suspect]
     Route: 048
     Dates: start: 20090202

REACTIONS (8)
  - BLISTER [None]
  - BURNING SENSATION [None]
  - FATIGUE [None]
  - INFLAMMATION [None]
  - LYMPHADENECTOMY [None]
  - OEDEMA [None]
  - SKIN EXFOLIATION [None]
  - TUMOUR MARKER INCREASED [None]
